FAERS Safety Report 9064279 (Version 1)
Quarter: 2013Q1

REPORT INFORMATION
  Report Type: Report from Study
  Country: US (occurrence: US)
  Receive Date: 20130131
  Receipt Date: 20130131
  Transmission Date: 20140127
  Serious: No
  Sender: FDA-Public Use
  Company Number: US-ABBOTT-12P-163-1022178-00

PATIENT
  Age: 61 None
  Sex: Male
  Weight: 96.25 kg

DRUGS (10)
  1. HUMIRA [Suspect]
     Indication: ANKYLOSING SPONDYLITIS
     Dates: start: 201208
  2. DUPROPRION XL [Concomitant]
     Indication: DEPRESSION
  3. DUPROPION SR [Concomitant]
     Indication: DEPRESSION
  4. LISIONOPRIL [Concomitant]
     Indication: HYPERTENSION
  5. GLIPIZIDE [Concomitant]
     Indication: TYPE 2 DIABETES MELLITUS
  6. METFORMIN [Concomitant]
     Indication: TYPE 2 DIABETES MELLITUS
  7. INDOMETHACIN [Concomitant]
     Indication: ANTIINFLAMMATORY THERAPY
  8. RAPAFLO [Concomitant]
     Indication: URINE FLOW DECREASED
  9. CALCIUM [Concomitant]
     Indication: PRODUCT USED FOR UNKNOWN INDICATION
  10. VITAMIN D [Concomitant]
     Indication: PRODUCT USED FOR UNKNOWN INDICATION

REACTIONS (4)
  - Muscle spasms [Not Recovered/Not Resolved]
  - Sinusitis [Recovering/Resolving]
  - Facial pain [Recovering/Resolving]
  - Toothache [Recovering/Resolving]
